FAERS Safety Report 5312744-8 (Version None)
Quarter: 2007Q2

REPORT INFORMATION
  Report Type: 
  Country: None (occurrence: None)
  Receive Date: 20070430
  Receipt Date: 20070416
  Transmission Date: 20071010
  Serious: Yes (Other)
  Sender: FDA-Public Use
  Company Number: US-ELI_LILLY_AND_COMPANY-US200704006150

PATIENT
  Age: 73 Year
  Sex: Female
  Weight: 43.537 kg

DRUGS (10)
  1. TERIPARATIDE [Suspect]
     Indication: OSTEOPOROSIS
     Dosage: 20 UG, UNK
     Route: 058
     Dates: start: 20050120, end: 20070101
  2. METOPROLOL SUCCINATE [Concomitant]
     Indication: CORONARY ARTERY DISEASE
     Dates: start: 19940101
  3. OSCAL [Concomitant]
     Indication: OSTEOPOROSIS
  4. MULTI-VITAMIN [Concomitant]
     Indication: PROPHYLAXIS
  5. LIPITOR [Concomitant]
     Indication: HYPERLIPIDAEMIA
     Dates: start: 19940101
  6. PLAVIX [Concomitant]
     Indication: CORONARY ARTERY DISEASE
     Dates: start: 19940101
  7. LASIX [Concomitant]
     Indication: CORONARY ARTERY DISEASE
     Dates: start: 19940101
  8. ACCUPRIL [Concomitant]
     Indication: CORONARY ARTERY DISEASE
     Dates: start: 19940101
  9. IMDUR [Concomitant]
     Indication: CORONARY ARTERY DISEASE
     Dates: start: 19940101
  10. CLONAZEPAM [Concomitant]
     Indication: ANAEMIA
     Dates: start: 20040101

REACTIONS (1)
  - RENAL CELL CARCINOMA STAGE UNSPECIFIED [None]
